FAERS Safety Report 19501592 (Version 2)
Quarter: 2021Q3

REPORT INFORMATION
  Report Type: Report from Study
  Country: CN (occurrence: CN)
  Receive Date: 20210707
  Receipt Date: 20210728
  Transmission Date: 20211014
  Serious: Yes (Other)
  Sender: FDA-Public Use
  Company Number: NVSC2021CN147445

PATIENT
  Age: 64 Year
  Sex: Female
  Weight: 65 kg

DRUGS (2)
  1. ZYKADIA [Suspect]
     Active Substance: CERITINIB
     Indication: NON-SMALL CELL LUNG CANCER
     Dosage: 450 MG, QD
     Route: 048
     Dates: start: 20200729
  2. ZYKADIA [Suspect]
     Active Substance: CERITINIB
     Dosage: UNK (3 CAPSULES A DAY AND 2 CAPSULES A DAY ALTERNATELY EVERY OTHER DAY)
     Route: 048

REACTIONS (6)
  - Inappropriate schedule of product administration [Unknown]
  - Condition aggravated [Not Recovered/Not Resolved]
  - Blood glucose increased [Not Recovered/Not Resolved]
  - Diabetes mellitus [Not Recovered/Not Resolved]
  - Depressed level of consciousness [Unknown]
  - Feeding disorder [Unknown]

NARRATIVE: CASE EVENT DATE: 202008
